FAERS Safety Report 10041029 (Version 2)
Quarter: 2014Q3

REPORT INFORMATION
  Report Type: Spontaneous
  Country: FR (occurrence: FR)
  Receive Date: 20140327
  Receipt Date: 20140716
  Transmission Date: 20150326
  Serious: Yes (Other)
  Sender: FDA-Public Use
  Company Number: FR-PFIZER INC-2014081395

PATIENT
  Age: 83 Year
  Sex: Female

DRUGS (10)
  1. AVLOCARDYL [Suspect]
     Active Substance: PROPRANOLOL HYDROCHLORIDE
     Dosage: UNK
     Route: 048
  2. ANASTROZOLE. [Suspect]
     Active Substance: ANASTROZOLE
     Dosage: UNK
     Route: 048
  3. GELUPRANE [Suspect]
     Active Substance: ACETAMINOPHEN
     Route: 048
  4. NEURONTIN [Suspect]
     Active Substance: GABAPENTIN
     Dosage: UNK
     Route: 048
  5. CYMBALTA [Suspect]
     Active Substance: DULOXETINE HYDROCHLORIDE
     Dosage: UNK
     Route: 048
  6. VERSATIS [Suspect]
     Active Substance: LIDOCAINE
     Dosage: UNK
     Route: 062
  7. NEURONTIN [Suspect]
     Active Substance: GABAPENTIN
     Dosage: 300 - 200 - 300 MG
     Route: 048
     Dates: start: 201401
  8. CYMBALTA [Suspect]
     Active Substance: DULOXETINE HYDROCHLORIDE
     Dosage: 60 MG, DAILY
     Route: 048
     Dates: start: 201401
  9. QUTENZA [Suspect]
     Active Substance: CAPSAICIN
     Dosage: UNK
     Route: 062
     Dates: end: 20131030
  10. GELUPRANE [Suspect]
     Active Substance: ACETAMINOPHEN
     Dosage: 1 - 1 - 1
     Route: 048
     Dates: start: 201401

REACTIONS (5)
  - Visual acuity reduced [Not Recovered/Not Resolved]
  - Cataract [Unknown]
  - Visual field defect [Not Recovered/Not Resolved]
  - Keratitis [Unknown]
  - Dry eye [Unknown]

NARRATIVE: CASE EVENT DATE: 201204
